FAERS Safety Report 18119225 (Version 1)
Quarter: 2020Q3

REPORT INFORMATION
  Report Type: Spontaneous
  Country: US (occurrence: US)
  Receive Date: 20200805
  Receipt Date: 20200805
  Transmission Date: 20201103
  Serious: Yes (Other)
  Sender: FDA-Public Use
  Company Number: None

PATIENT
  Age: 71 Year
  Sex: Female
  Weight: 68.04 kg

DRUGS (2)
  1. GERM ATTACK HAND SANITIZER [Suspect]
     Active Substance: ALCOHOL
     Indication: HEADACHE
  2. GERM ATTACK HAND SANITIZER [Suspect]
     Active Substance: ALCOHOL
     Indication: NAUSEA

REACTIONS (3)
  - Product odour abnormal [None]
  - Product formulation issue [None]
  - Nausea [None]
